FAERS Safety Report 6319665-2 (Version None)
Quarter: 2009Q3

REPORT INFORMATION
  Report Type: 
  Country: None (occurrence: None)
  Receive Date: 20090822
  Receipt Date: 20081002
  Transmission Date: 20100115
  Serious: No
  Sender: FDA-Public Use
  Company Number: US-ABBOTT-08P-163-0479690-00

PATIENT
  Sex: Female

DRUGS (18)
  1. NIASPAN [Suspect]
     Indication: HYPERCHOLESTEROLAEMIA
     Route: 048
     Dates: start: 20080730, end: 20080801
  2. DIOVAN HCT [Concomitant]
     Indication: DRUG USE FOR UNKNOWN INDICATION
     Dosage: 160/12.5MG
     Route: 048
  3. BECLOMETASONE DIPROPIONATE [Concomitant]
     Indication: DRUG USE FOR UNKNOWN INDICATION
     Dosage: 4MG
     Route: 045
  4. ESOMEPRAZOLE MAGNESIUM [Concomitant]
     Indication: DRUG USE FOR UNKNOWN INDICATION
     Route: 048
  5. NIFEDIPINE [Concomitant]
     Indication: DRUG USE FOR UNKNOWN INDICATION
  6. ATORVASTATIN CALCIUM [Concomitant]
     Indication: DRUG USE FOR UNKNOWN INDICATION
  7. LEVOTHYROXINE SODIUM [Concomitant]
     Indication: DRUG USE FOR UNKNOWN INDICATION
  8. ESCITALOPRAM OXALATE [Concomitant]
     Indication: DRUG USE FOR UNKNOWN INDICATION
  9. TRAMADOL [Concomitant]
     Indication: DRUG USE FOR UNKNOWN INDICATION
  10. CALCIUM-SANDOZ [Concomitant]
     Indication: DRUG USE FOR UNKNOWN INDICATION
  11. ASPIRIN [Concomitant]
     Indication: DRUG USE FOR UNKNOWN INDICATION
  12. VIGRAN [Concomitant]
     Indication: DRUG USE FOR UNKNOWN INDICATION
  13. OXAZOLAM [Concomitant]
     Indication: DRUG USE FOR UNKNOWN INDICATION
  14. MULTIVITAMIN [Concomitant]
     Indication: DRUG USE FOR UNKNOWN INDICATION
  15. LACTOBACILLUS ACIDOPHILUS [Concomitant]
     Indication: DRUG USE FOR UNKNOWN INDICATION
  16. GLUCOSAMINE W/CHONDROITIN SULFATE [Concomitant]
     Indication: DRUG USE FOR UNKNOWN INDICATION
     Dosage: 500/400MG
     Route: 048
  17. FISH OIL [Concomitant]
     Indication: DRUG USE FOR UNKNOWN INDICATION
  18. B-KOMPLEX [Concomitant]
     Indication: DRUG USE FOR UNKNOWN INDICATION

REACTIONS (2)
  - FLUSHING [None]
  - RASH GENERALISED [None]
